FAERS Safety Report 6991639-8 (Version None)
Quarter: 2010Q3

REPORT INFORMATION
  Report Type: 
  Country: None (occurrence: None)
  Receive Date: 20100916
  Receipt Date: 20100916
  Transmission Date: 20110219
  Serious: Yes (Disabling)
  Sender: FDA-Public Use
  Company Number: None

PATIENT
  Age: 28 Year
  Sex: Male
  Weight: 81.6475 kg

DRUGS (1)
  1. MEPHYTON [Suspect]
     Indication: HAEMORRHAGE
     Dosage: 10MG DAILY FOR 1 MONTH PO
     Route: 048

REACTIONS (2)
  - DRUG LABEL CONFUSION [None]
  - MEDICATION ERROR [None]
